FAERS Safety Report 5268240-X (Version None)
Quarter: 2007Q1

REPORT INFORMATION
  Report Type: 
  Country: None (occurrence: None)
  Receive Date: 20070316
  Receipt Date: 20070316
  Transmission Date: 20070707
  Serious: Yes (Other)
  Sender: FDA-Public Use
  Company Number: None

PATIENT
  Sex: Female
  Weight: 85.2762 kg

DRUGS (2)
  1. IRESSA [Suspect]
     Indication: METASTATIC RENAL CELL CARCINOMA
     Dosage: 250 MG  Q DAY  PO   DAILY
     Route: 048
     Dates: start: 20070129
  2. PEG-INTRON [Suspect]
     Indication: METASTATIC RENAL CELL CARCINOMA
     Dosage: 4  MG/KG = 230 MG WEEKLY  SQ
     Route: 058
     Dates: start: 20070129

REACTIONS (3)
  - DEHYDRATION [None]
  - DIZZINESS [None]
  - SYNCOPE [None]
